FAERS Safety Report 23296284 (Version 5)
Quarter: 2025Q2

REPORT INFORMATION
  Report Type: Report from Study
  Country: US (occurrence: US)
  Receive Date: 20231214
  Receipt Date: 20250629
  Transmission Date: 20250717
  Serious: Yes (Other)
  Sender: ABBVIE
  Company Number: US-ABBVIE-5532968

PATIENT
  Age: 36 Year
  Sex: Female

DRUGS (3)
  1. RINVOQ [Suspect]
     Active Substance: UPADACITINIB
     Indication: Product used for unknown indication
     Route: 048
     Dates: start: 20230425
  2. RINVOQ [Suspect]
     Active Substance: UPADACITINIB
     Indication: Product used for unknown indication
     Route: 048
     Dates: end: 202505
  3. RINVOQ [Suspect]
     Active Substance: UPADACITINIB
     Indication: Product used for unknown indication
     Route: 048

REACTIONS (15)
  - Breast mass [Unknown]
  - Mammoplasty [Not Recovered/Not Resolved]
  - Fluid retention [Unknown]
  - Haematochezia [Unknown]
  - Acne [Not Recovered/Not Resolved]
  - Keloid scar [Not Recovered/Not Resolved]
  - Anal haemorrhage [Not Recovered/Not Resolved]
  - Gastrointestinal disorder [Unknown]
  - Colitis ulcerative [Unknown]
  - Impaired healing [Not Recovered/Not Resolved]
  - Oedema peripheral [Not Recovered/Not Resolved]
  - Colitis [Unknown]
  - Large intestine polyp [Recovered/Resolved]
  - Limb injury [Not Recovered/Not Resolved]
  - Post procedural complication [Unknown]

NARRATIVE: CASE EVENT DATE: 20230101
